FAERS Safety Report 12838764 (Version 4)
Quarter: 2017Q1

REPORT INFORMATION
  Report Type: Spontaneous
  Country: US (occurrence: US)
  Receive Date: 20161012
  Receipt Date: 20170113
  Transmission Date: 20170428
  Serious: Yes (Death, Hospitalization)
  Sender: FDA-Public Use
  Company Number: US-PFIZER INC-2016435783

PATIENT
  Age: 74 Year
  Sex: Female
  Weight: 96 kg

DRUGS (2)
  1. SUTENT [Suspect]
     Active Substance: SUNITINIB MALATE
     Dosage: 37.5 MG, CYCLIC (EVERY 28 DAYS WITH 14 DAYS OFF)
     Route: 048
     Dates: start: 2016
  2. SUTENT [Suspect]
     Active Substance: SUNITINIB MALATE
     Indication: RENAL CANCER METASTATIC
     Dosage: 50 MG, CYCLIC (EVERY 28 DAYS WITH 14 DAYS OFF)
     Route: 048
     Dates: start: 20160729, end: 20160826

REACTIONS (15)
  - Balance disorder [Recovering/Resolving]
  - Dysgeusia [Unknown]
  - Death [Fatal]
  - Decreased appetite [Unknown]
  - Impaired driving ability [Recovering/Resolving]
  - Tremor [Recovering/Resolving]
  - Productive cough [Unknown]
  - Sleep disorder [Unknown]
  - Gait disturbance [Recovering/Resolving]
  - Constipation [Unknown]
  - Urinary tract infection [Recovered/Resolved]
  - Asthenia [Not Recovered/Not Resolved]
  - Dizziness [Recovering/Resolving]
  - Diarrhoea [Not Recovered/Not Resolved]
  - Cough [Not Recovered/Not Resolved]

NARRATIVE: CASE EVENT DATE: 2016
